FAERS Safety Report 13111646 (Version 1)
Quarter: 2017Q1

REPORT INFORMATION
  Report Type: Spontaneous
  Country: DE (occurrence: DE)
  Receive Date: 20170112
  Receipt Date: 20170112
  Transmission Date: 20170428
  Serious: Yes (Life-Threatening, Hospitalization, Other)
  Sender: FDA-Public Use
  Company Number: DE-MYLANLABS-2017M1001605

PATIENT

DRUGS (5)
  1. AMLODIPINE [Suspect]
     Active Substance: AMLODIPINE BESYLATE
     Indication: HYPERTENSION
     Dosage: UNK
     Route: 048
  2. ENALAPRIL [Suspect]
     Active Substance: ENALAPRIL
     Indication: HYPERTENSION
     Dosage: UNK
     Route: 048
  3. CICLOSPORIN A [Concomitant]
     Active Substance: CYCLOSPORINE
     Indication: PRODUCT USED FOR UNKNOWN INDICATION
     Dosage: UNK
  4. GADOVIST [Suspect]
     Active Substance: GADOBUTROL
     Indication: NUCLEAR MAGNETIC RESONANCE IMAGING
     Dosage: UNK
     Route: 042
  5. MYCOPHENOLATMOFETIL AL [Concomitant]
     Indication: PRODUCT USED FOR UNKNOWN INDICATION
     Dosage: UNK

REACTIONS (13)
  - Hypotension [Unknown]
  - Nausea [Unknown]
  - Left ventricular failure [Unknown]
  - Neck pain [Unknown]
  - Leukocytosis [Unknown]
  - Acute respiratory failure [Unknown]
  - Haemorrhagic anaemia [Unknown]
  - Dizziness [Unknown]
  - Blood creatinine increased [Unknown]
  - Paraesthesia [Unknown]
  - Overdose [Unknown]
  - Cardiogenic shock [Unknown]
  - Chest pain [Unknown]

NARRATIVE: CASE EVENT DATE: 20160303
